FAERS Safety Report 13598121 (Version 2)
Quarter: 2017Q2

REPORT INFORMATION
  Report Type: Spontaneous
  Country: US (occurrence: US)
  Receive Date: 20170531
  Receipt Date: 20170622
  Transmission Date: 20170830
  Serious: No
  Sender: FDA-Public Use
  Company Number: US-LUNDBECK-DKLU2031001

PATIENT
  Age: 42 Year
  Sex: Female

DRUGS (5)
  1. NORTHERA [Suspect]
     Active Substance: DROXIDOPA
     Route: 048
  2. NORTHERA [Suspect]
     Active Substance: DROXIDOPA
     Indication: PRODUCT USED FOR UNKNOWN INDICATION
     Dosage: SCHEDULE B, TITRATING
     Route: 048
     Dates: start: 20170510
  3. NORTHERA [Suspect]
     Active Substance: DROXIDOPA
     Route: 048
  4. NORTHERA [Suspect]
     Active Substance: DROXIDOPA
     Route: 048
  5. NORTHERA [Suspect]
     Active Substance: DROXIDOPA
     Route: 048

REACTIONS (8)
  - Nausea [Recovering/Resolving]
  - Abdominal pain upper [Unknown]
  - Syncope [Unknown]
  - Blood pressure decreased [Unknown]
  - Dizziness [Unknown]
  - Vomiting [Recovered/Resolved]
  - Head injury [Unknown]
  - Drug titration error [Unknown]

NARRATIVE: CASE EVENT DATE: 20170510
